FAERS Safety Report 7481820-6 (Version None)
Quarter: 2011Q2

REPORT INFORMATION
  Report Type: 
  Country: None (occurrence: None)
  Receive Date: 20110516
  Receipt Date: 20110510
  Transmission Date: 20111010
  Serious: Yes (Other)
  Sender: FDA-Public Use
  Company Number: US-ALEXION-A201100364

PATIENT
  Sex: Female

DRUGS (4)
  1. IRINOTECAN HYDROCHLORIDE [Concomitant]
     Dosage: UNK
     Dates: start: 20110324
  2. IRINOTECAN HYDROCHLORIDE [Concomitant]
     Dosage: UNK
     Dates: start: 20100101, end: 20100101
  3. ERBITUX [Concomitant]
  4. SOLIRIS [Suspect]
     Indication: PAROXYSMAL NOCTURNAL HAEMOGLOBINURIA
     Dosage: UNK
     Route: 042

REACTIONS (4)
  - ABDOMINAL PAIN [None]
  - NERVOUSNESS [None]
  - NEUROPATHY PERIPHERAL [None]
  - PRURITUS GENERALISED [None]
